FAERS Safety Report 8087599-1 (Version None)
Quarter: 2012Q1

REPORT INFORMATION
  Report Type: 
  Country: None (occurrence: None)
  Receive Date: 20120128
  Receipt Date: 20110602
  Transmission Date: 20120608
  Serious: No
  Sender: FDA-Public Use
  Company Number: US-ABBOTT-11P-163-0728428-00

PATIENT
  Age: 40 Year
  Sex: Male

DRUGS (1)
  1. HUMIRA [Suspect]
     Indication: PSORIASIS
     Dates: start: 20100801

REACTIONS (8)
  - CONTUSION [None]
  - URINARY TRACT DISORDER [None]
  - RASH MACULAR [None]
  - INCREASED TENDENCY TO BRUISE [None]
  - INFERTILITY MALE [None]
  - SPLENOMEGALY [None]
  - INJECTION SITE HAEMATOMA [None]
  - SPERMATOZOA ABNORMAL [None]
